FAERS Safety Report 9403582 (Version 2)
Quarter: 2013Q3

REPORT INFORMATION
  Report Type: Spontaneous
  Country: JP (occurrence: JP)
  Receive Date: 20130717
  Receipt Date: 20130828
  Transmission Date: 20140515
  Serious: Yes (Death, Other)
  Sender: FDA-Public Use
  Company Number: JP-ROCHE-1216828

PATIENT
  Age: 61 Year
  Sex: Female

DRUGS (8)
  1. CELLCEPT [Suspect]
     Indication: PROPHYLAXIS AGAINST TRANSPLANT REJECTION
     Route: 048
     Dates: start: 20120323
  2. RITUXAN [Suspect]
     Indication: RENAL TRANSPLANT
     Route: 041
     Dates: start: 20120330, end: 20120330
  3. RITUXAN [Suspect]
     Indication: PROPHYLAXIS AGAINST TRANSPLANT REJECTION
  4. TACROLIMUS HYDRATE [Suspect]
     Indication: PROPHYLAXIS AGAINST TRANSPLANT REJECTION
     Dosage: THE LAST DOSE OF TACROLIMUS HYDRATE WAS ADMINISTERED ON 19/DEC/2012.
     Route: 048
     Dates: start: 20120323
  5. MEDROL [Suspect]
     Indication: PROPHYLAXIS AGAINST TRANSPLANT REJECTION
     Dosage: THE LAST DOSES OF AND METHYLPREDNISOLONE WAS 23/DEC /2012
     Route: 048
     Dates: start: 20120323
  6. NEORAL [Suspect]
     Indication: PROPHYLAXIS AGAINST TRANSPLANT REJECTION
     Route: 048
     Dates: start: 20121220
  7. NU-LOTAN [Concomitant]
     Indication: HYPERTENSION
     Route: 048
  8. AMLODIN [Concomitant]
     Indication: HYPERTENSION
     Route: 048

REACTIONS (6)
  - Hepatitis B [Fatal]
  - Disseminated intravascular coagulation [Fatal]
  - Multi-organ failure [Fatal]
  - Pancreatitis acute [Unknown]
  - Sepsis [Unknown]
  - Azotaemia [Unknown]
